FAERS Safety Report 5483990-8 (Version None)
Quarter: 2007Q4

REPORT INFORMATION
  Report Type: 
  Country: None (occurrence: None)
  Receive Date: 20071012
  Receipt Date: 20070928
  Transmission Date: 20080405
  Serious: Yes (Disabling)
  Sender: FDA-Public Use
  Company Number: GB-RANBAXY-2007RR-10454

PATIENT

DRUGS (5)
  1. CIPROFLOXACIN 500 MG FILM-COATED TABLETS [Suspect]
     Indication: PROSTATITIS
     Dosage: 500 MG, BID
     Route: 048
     Dates: start: 20060901, end: 20061001
  2. ATORVASTATIN CALCIUM [Concomitant]
     Dosage: 20 MG, UNK
     Route: 048
  3. SOLPADOL [Concomitant]
     Route: 048
  4. TEMAZEPAM [Concomitant]
     Dosage: 20 MG, UNK
     Route: 048
  5. TRIMETHOPRIM [Concomitant]
     Indication: PROSTATITIS
     Dosage: 200 MG, QD

REACTIONS (3)
  - INTERCOSTAL NEURALGIA [None]
  - TINNITUS [None]
  - TREMOR [None]
